FAERS Safety Report 16470009 (Version 1)
Quarter: 2019Q2

REPORT INFORMATION
  Report Type: Spontaneous
  Country: IT (occurrence: IT)
  Receive Date: 20190624
  Receipt Date: 20190624
  Transmission Date: 20190711
  Serious: Yes (Other)
  Sender: FDA-Public Use
  Company Number: IT-BRACCO-2019IT03055

PATIENT
  Age: 80 Year
  Sex: Female

DRUGS (1)
  1. IOPAMIRO [Suspect]
     Active Substance: IOPAMIDOL
     Indication: COMPUTERISED TOMOGRAM
     Dosage: 100 ML, SINGLE
     Route: 041
     Dates: start: 20190502, end: 20190502

REACTIONS (2)
  - Infusion site extravasation [Recovering/Resolving]
  - Vein rupture [Recovering/Resolving]

NARRATIVE: CASE EVENT DATE: 20190502
